FAERS Safety Report 6225654-9 (Version None)
Quarter: 2009Q2

REPORT INFORMATION
  Report Type: 
  Country: None (occurrence: None)
  Receive Date: 20090612
  Receipt Date: 20090428
  Transmission Date: 20091009
  Serious: No
  Sender: FDA-Public Use
  Company Number: US-ABBOTT-09P-163-0570660-00

PATIENT
  Sex: Female
  Weight: 104.42 kg

DRUGS (4)
  1. HUMIRA [Suspect]
     Indication: RHEUMATOID ARTHRITIS
     Route: 058
     Dates: start: 20090301
  2. UNNAMED ALLERGY MEDICATION [Concomitant]
     Indication: HYPERSENSITIVITY
  3. UNNAMED HEART MEDICATION [Concomitant]
     Indication: DRUG USE FOR UNKNOWN INDICATION
  4. UNNAMED DEPRESSION MEDICATION [Concomitant]
     Indication: DEPRESSION

REACTIONS (1)
  - HEADACHE [None]
